FAERS Safety Report 7580004 (Version 5)
Quarter: 2013Q4

REPORT INFORMATION
  Report Type: Spontaneous
  Country: US (occurrence: US)
  Receive Date: 20100910
  Receipt Date: 20131218
  Transmission Date: 20140711
  Serious: Yes (Other)
  Sender: FDA-Public Use
  Company Number: US-BAYER-201032842NA

PATIENT
  Age: 26 Year
  Sex: Female
  Weight: 96.36 kg

DRUGS (1)
  1. MIRENA [Suspect]
     Indication: CONTRACEPTION
     Dosage: 20 MCG/24HR, CONT
     Route: 015
     Dates: start: 20080904, end: 200911

REACTIONS (23)
  - Post procedural haemorrhage [Recovered/Resolved]
  - Nausea [Unknown]
  - Vomiting [Unknown]
  - Alopecia [Unknown]
  - Weight increased [Recovered/Resolved]
  - Pelvic inflammatory disease [Recovered/Resolved]
  - Mood swings [Unknown]
  - Palpitations [Unknown]
  - Headache [Unknown]
  - Vulvovaginitis trichomonal [Recovered/Resolved]
  - Dizziness [Not Recovered/Not Resolved]
  - Amnesia [Not Recovered/Not Resolved]
  - Vertigo [Not Recovered/Not Resolved]
  - Hair texture abnormal [None]
  - Anger [None]
  - Thinking abnormal [None]
  - Blood potassium decreased [None]
  - Motion sickness [None]
  - Heart rate increased [None]
  - Loss of consciousness [None]
  - Feeling abnormal [None]
  - Bone pain [None]
  - Balance disorder [Not Recovered/Not Resolved]
